FAERS Safety Report 17816960 (Version 1)
Quarter: 2020Q2

REPORT INFORMATION
  Report Type: Spontaneous
  Country: US (occurrence: US)
  Receive Date: 20200522
  Receipt Date: 20200522
  Transmission Date: 20200714
  Serious: No
  Sender: FDA-Public Use
  Company Number: None

PATIENT
  Age: 66 Year
  Weight: 90.5 kg

DRUGS (14)
  1. PREDNISONE. [Concomitant]
     Active Substance: PREDNISONE
  2. CYMBALTA [Concomitant]
     Active Substance: DULOXETINE HYDROCHLORIDE
  3. MEKTOVI [Suspect]
     Active Substance: BINIMETINIB
     Indication: MALIGNANT MELANOMA
     Dates: start: 20200429, end: 20200522
  4. SULFASALAZINE. [Concomitant]
     Active Substance: SULFASALAZINE
  5. TRAZODONE [Concomitant]
     Active Substance: TRAZODONE HYDROCHLORIDE
  6. VENTOLIN [Concomitant]
     Active Substance: ALBUTEROL SULFATE
  7. GABAPENTIN. [Concomitant]
     Active Substance: GABAPENTIN
  8. ORPHENADRINE [Concomitant]
     Active Substance: ORPHENADRINE
  9. PROCHLORPERAZINE. [Concomitant]
     Active Substance: PROCHLORPERAZINE
  10. BRAFTOVI [Suspect]
     Active Substance: ENCORAFENIB
     Indication: MALIGNANT MELANOMA
     Dates: start: 20191003, end: 20200522
  11. MTX [Concomitant]
     Active Substance: METHOTREXATE SODIUM
  12. PERCOCET [Concomitant]
     Active Substance: ACETAMINOPHEN\OXYCODONE HYDROCHLORIDE
  13. PROAIR HFA [Concomitant]
     Active Substance: ALBUTEROL SULFATE
  14. FOLIC ACID. [Concomitant]
     Active Substance: FOLIC ACID

REACTIONS (1)
  - Disease progression [None]

NARRATIVE: CASE EVENT DATE: 20200522
